FAERS Safety Report 24173118 (Version 3)
Quarter: 2024Q3

REPORT INFORMATION
  Report Type: Spontaneous
  Country: US (occurrence: US)
  Receive Date: 20240805
  Receipt Date: 20240920
  Transmission Date: 20241017
  Serious: No
  Sender: PFIZER
  Company Number: US-PFIZER INC-202400226163

PATIENT
  Age: 12 Year
  Sex: Male
  Weight: 33.57 kg

DRUGS (2)
  1. GENOTROPIN [Suspect]
     Active Substance: SOMATROPIN
     Indication: Dwarfism
     Dosage: 1.2 MG, 1X/DAY (INJECTION ADMINISTERED EVERY NIGHT INTO HIS FATTY AREAS)
     Dates: start: 202401
  2. ZOLOFT [Concomitant]
     Active Substance: SERTRALINE HYDROCHLORIDE
     Indication: Anxiety
     Dosage: 50MG TABLET DAILY BY MOUTH

REACTIONS (2)
  - Drug dose omission by device [Unknown]
  - Device leakage [Unknown]
